FAERS Safety Report 8876349 (Version 1)
Quarter: 2012Q4

REPORT INFORMATION
  Report Type: Report from Study
  Country: GB (occurrence: GB)
  Receive Date: 20121030
  Receipt Date: 20121030
  Transmission Date: 20130627
  Serious: Yes (Hospitalization)
  Sender: FDA-Public Use
  Company Number: GB-OTSUKA-EU-2011-10476

PATIENT
  Sex: Male
  Weight: 89 kg

DRUGS (9)
  1. SAMSCA [Suspect]
     Indication: INAPPROPRIATE ANTIDIURETIC HORMONE SECRETION
     Dosage: 15 Mg milligram(s), daily dose
     Route: 048
     Dates: start: 20110421, end: 20110518
  2. SAMSCA [Suspect]
     Dosage: 15 Mg milligram(s), daily dose
     Route: 048
     Dates: start: 20110531, end: 20111114
  3. SAMSCA [Suspect]
     Dosage: 30 Mg milligram(s), daily dose
     Route: 048
     Dates: start: 20111114, end: 20111203
  4. SAMSCA [Suspect]
     Dosage: 60 Mg milligram(s), daily dose
     Route: 048
     Dates: start: 20111204, end: 20111219
  5. METFORMIN [Concomitant]
     Indication: DIABETES MELLITUS
     Dosage: 2 G gram(s), daily dose
     Route: 048
     Dates: start: 2005
  6. INSULIN LANTUS [Concomitant]
     Indication: TYPE 2 DIABETES MELLITUS
     Dosage: 24 Iu, daily dose
     Route: 058
     Dates: start: 200811
  7. NOVORAPID [Concomitant]
     Indication: TYPE 2 DIABETES MELLITUS
     Dosage: 16 Iu, daily dose
     Route: 058
     Dates: start: 200810
  8. AMITRIPTYLINE [Concomitant]
     Indication: DEPRESSION
     Dosage: 10 Mg milligram(s), daily dose
     Route: 048
     Dates: start: 20110415
  9. DILZEM [Concomitant]
     Indication: HYPERTENSION
     Dosage: 120 Mg milligram(s), daily dose
     Route: 048
     Dates: start: 20110204

REACTIONS (2)
  - Malignant neoplasm progression [Not Recovered/Not Resolved]
  - Hyponatraemia [Not Recovered/Not Resolved]
